FAERS Safety Report 18290801 (Version 1)
Quarter: 2020Q3

REPORT INFORMATION
  Report Type: Spontaneous
  Country: US (occurrence: US)
  Receive Date: 20200922
  Receipt Date: 20200922
  Transmission Date: 20201103
  Serious: Yes (Death, Other)
  Sender: FDA-Public Use
  Company Number: US-TEVA-2020-US-1828544

PATIENT
  Sex: Male

DRUGS (8)
  1. VICODIN [Suspect]
     Active Substance: ACETAMINOPHEN\HYDROCODONE BITARTRATE
     Indication: ACCIDENT AT WORK
     Route: 065
  2. HYDROCODONE [Suspect]
     Active Substance: HYDROCODONE
     Route: 065
  3. VICODIN [Suspect]
     Active Substance: ACETAMINOPHEN\HYDROCODONE BITARTRATE
     Indication: ALVEOLAR OSTEITIS
  4. TRAMADOL. [Suspect]
     Active Substance: TRAMADOL
     Indication: ACCIDENT AT WORK
     Route: 065
  5. ACETAMINOPHEN W/OXYCODONE [Suspect]
     Active Substance: ACETAMINOPHEN\OXYCODONE HYDROCHLORIDE
     Route: 065
  6. HYDROCODONE BITARTRATE AND ACETAMINOPHEN [Suspect]
     Active Substance: ACETAMINOPHEN\HYDROCODONE BITARTRATE
     Route: 065
  7. FENTANYL. [Suspect]
     Active Substance: FENTANYL
     Indication: PRODUCT USED FOR UNKNOWN INDICATION
     Route: 065
  8. PERCOCET [Suspect]
     Active Substance: ACETAMINOPHEN\OXYCODONE HYDROCHLORIDE
     Indication: ALVEOLAR OSTEITIS
     Route: 065

REACTIONS (7)
  - Psychiatric symptom [Unknown]
  - Overdose [Fatal]
  - Accident at work [Unknown]
  - Drug dependence [Unknown]
  - Foot fracture [Unknown]
  - Abnormal behaviour [Unknown]
  - Legal problem [Unknown]
